FAERS Safety Report 5052615-8 (Version None)
Quarter: 2006Q3

REPORT INFORMATION
  Report Type: 
  Country: None (occurrence: None)
  Receive Date: 20060717
  Receipt Date: 20060522
  Transmission Date: 20061208
  Serious: Yes (Hospitalization)
  Sender: FDA-Public Use
  Company Number: DE-GLAXOSMITHKLINE-D0049804A

PATIENT
  Age: 8 Month
  Sex: Female

DRUGS (1)
  1. AUGMENTIN '125' [Suspect]
     Indication: ILL-DEFINED DISORDER
     Route: 048
     Dates: start: 20060201

REACTIONS (2)
  - HEPATIC ENZYME INCREASED [None]
  - VIRAL INFECTION [None]
